FAERS Safety Report 5383495-9 (Version None)
Quarter: 2007Q3

REPORT INFORMATION
  Report Type: 
  Country: None (occurrence: None)
  Receive Date: 20070706
  Receipt Date: 20070620
  Transmission Date: 20080115
  Serious: Yes (Hospitalization)
  Sender: FDA-Public Use
  Company Number: 8025132

PATIENT
  Age: 90 Year
  Sex: Male

DRUGS (8)
  1. KEPPRA [Suspect]
     Dosage: 1000 MG /D PO
     Route: 048
     Dates: end: 20060130
  2. ZANTAC [Suspect]
     Dosage: 150 MG /D PO
     Route: 048
     Dates: end: 20060130
  3. ALLOPURINOL [Suspect]
     Dosage: 200 MG/D PO
     Route: 048
     Dates: end: 20060130
  4. PAROXETINE HCL [Suspect]
     Dosage: 20 MG /D PO
     Route: 048
     Dates: end: 20060203
  5. IRBESARTAN [Concomitant]
  6. SYNACTHENE [Concomitant]
  7. DEPAKENE [Concomitant]
  8. ZOLPIDEM TARTRATE [Concomitant]

REACTIONS (1)
  - THROMBOCYTOPENIA [None]
